FAERS Safety Report 9375191 (Version 2)
Quarter: 2014Q2

REPORT INFORMATION
  Report Type: Spontaneous
  Country: US (occurrence: US)
  Receive Date: 20130628
  Receipt Date: 20140414
  Transmission Date: 20141212
  Serious: Yes (Hospitalization)
  Sender: FDA-Public Use
  Company Number: US-BAYER-2013-079797

PATIENT
  Age: 46 Year
  Sex: Female
  Weight: 90.7 kg

DRUGS (5)
  1. GIANVI [Suspect]
     Dosage: UNK
     Dates: start: 20100611, end: 20101014
  2. YAZ [Suspect]
     Dosage: UNK
     Dates: start: 20090219, end: 20090519
  3. VYTORIN [Concomitant]
     Dosage: UNK
     Route: 048
     Dates: start: 2008
  4. IBUPROFEN [Concomitant]
     Dosage: UNK
     Route: 048
     Dates: start: 20101013
  5. ASPIRIN [Concomitant]
     Dosage: UNK
     Route: 048
     Dates: start: 20101013

REACTIONS (3)
  - Pulmonary embolism [None]
  - Injury [None]
  - Emotional distress [None]
